FAERS Safety Report 15090057 (Version 1)
Quarter: 2018Q2

REPORT INFORMATION
  Report Type: Report from Study
  Country: FI (occurrence: FI)
  Receive Date: 20180629
  Receipt Date: 20180629
  Transmission Date: 20180711
  Serious: Yes (Other)
  Sender: FDA-Public Use
  Company Number: FI-MYLANLABS-2018M1047602

PATIENT
  Sex: Male

DRUGS (2)
  1. LEPONEX [Suspect]
     Active Substance: CLOZAPINE
     Indication: PRODUCT USED FOR UNKNOWN INDICATION
     Dosage: UNK
  2. LEPONEX [Suspect]
     Active Substance: CLOZAPINE
     Dosage: 500 MG, QD
     Dates: end: 20180614

REACTIONS (1)
  - B-cell lymphoma [Recovered/Resolved]
